FAERS Safety Report 4778491-6 (Version None)
Quarter: 2005Q3

REPORT INFORMATION
  Report Type: 
  Country: None (occurrence: None)
  Receive Date: 20050922
  Receipt Date: 20050916
  Transmission Date: 20060218
  Serious: No
  Sender: FDA-Public Use
  Company Number: 163-20785-05090213

PATIENT
  Age: 54 Year
  Sex: Female

DRUGS (1)
  1. THALOMID [Suspect]
     Indication: LYMPHOMA
     Dosage: 50 MG, DAILY, ORAL
     Route: 048
     Dates: start: 20050823

REACTIONS (1)
  - NO ADVERSE EFFECT [None]
